FAERS Safety Report 25858028 (Version 1)
Quarter: 2025Q3

REPORT INFORMATION
  Report Type: Spontaneous
  Country: GB (occurrence: None)
  Receive Date: 20250929
  Receipt Date: 20250929
  Transmission Date: 20251021
  Serious: Yes (Disabling)
  Sender: ORGANON
  Company Number: None

PATIENT
  Age: 74 Year
  Sex: Female

DRUGS (1)
  1. MOMETASONE [Suspect]
     Active Substance: MOMETASONE
     Indication: Rhinitis
     Dosage: 50 MG ONCE A DAY
     Dates: start: 20250919, end: 20250923

REACTIONS (1)
  - Infusion [Recovered/Resolved with Sequelae]

NARRATIVE: CASE EVENT DATE: 20250920
